FAERS Safety Report 9341637 (Version 1)
Quarter: 2013Q2

REPORT INFORMATION
  Report Type: Spontaneous
  Country: US (occurrence: US)
  Receive Date: 20130611
  Receipt Date: 20130611
  Transmission Date: 20140414
  Serious: Yes (Hospitalization)
  Sender: FDA-Public Use
  Company Number: US-BAYER-2013-069382

PATIENT
  Age: 51 Year
  Sex: Female

DRUGS (9)
  1. YASMIN [Suspect]
  2. PROSCAR [Concomitant]
  3. XANAX [Concomitant]
     Dosage: AS NEEDED
  4. COZAAR [Concomitant]
  5. QUININE SULF [Concomitant]
     Dosage: 260 MG, UNK
  6. CELEBREX [Concomitant]
     Dosage: 200 MG, UNK
  7. FINASTERIDE [Concomitant]
     Dosage: 5 MG, UNK
  8. CARISOPRODOL [Concomitant]
     Dosage: 350 MG, UNK
  9. HYDROCHLOROTHIAZID [Concomitant]
     Dosage: 25 MG, UNK

REACTIONS (1)
  - Embolic stroke [None]
